FAERS Safety Report 8299634 (Version 3)
Quarter: 2012Q4

REPORT INFORMATION
  Report Type: 
  Country: US (occurrence: US)
  Receive Date: 20111219
  Receipt Date: 20121225
  Transmission Date: 20130627
  Serious: Yes (Disabling, Other)
  Sender: FDA-Public Use
  Company Number: US-JNJFOC-20111205192

PATIENT
  Age: 48 Year
  Sex: Female

DRUGS (12)
  1. STELARA [Suspect]
     Indication: PSORIASIS
     Route: 058
     Dates: start: 20111104, end: 2012
  2. PREDNISONE [Suspect]
     Indication: SWELLING
     Dosage: 7 days
     Route: 048
  3. PREDNISONE [Suspect]
     Indication: SWELLING
     Dosage: 7 days
     Route: 048
  4. PREDNISONE [Suspect]
     Indication: SWELLING
     Dosage: 7 days
     Route: 048
     Dates: start: 201110
  5. PREDNISONE [Suspect]
     Indication: ARTHRALGIA
     Dosage: 7 days
     Route: 048
  6. PREDNISONE [Suspect]
     Indication: ARTHRALGIA
     Dosage: 7 days
     Route: 048
  7. PREDNISONE [Suspect]
     Indication: ARTHRALGIA
     Dosage: 7 days
     Route: 048
     Dates: start: 201110
  8. HUMIRA [Suspect]
     Indication: PSORIASIS
     Dosage: loading dose
     Route: 065
     Dates: start: 20111003
  9. PHENTERMINE [Suspect]
     Indication: WEIGHT DECREASED
     Dosage: 20-JUL (year unspecified)
     Route: 048
  10. AMBIEN [Concomitant]
     Indication: SLEEP DISORDER
     Dosage: 1 every night at bed time or as needed
     Route: 065
  11. HYDROXYZINE [Concomitant]
     Indication: PRURITUS
     Dosage: 25-50 mg every 6 (hours) or as needed
     Route: 065
  12. TRAMADOL [Concomitant]
     Indication: PAIN
     Dosage: every 6 (hours) or as needed
     Route: 065

REACTIONS (2)
  - Hepatitis B [Recovering/Resolving]
  - Arthralgia [Not Recovered/Not Resolved]
